FAERS Safety Report 10501247 (Version 1)
Quarter: 2014Q4

REPORT INFORMATION
  Report Type: Spontaneous
  Country: US (occurrence: None)
  Receive Date: 20141006
  Receipt Date: 20141006
  Transmission Date: 20150528
  Serious: No
  Sender: FDA-Public Use
  Company Number: None

PATIENT
  Age: 88 Year
  Sex: Male

DRUGS (18)
  1. HYDROCODONE ACETAMINOPHEN [Concomitant]
     Active Substance: ACETAMINOPHEN\HYDROCODONE BITARTRATE
  2. MEGESTROL [Concomitant]
     Active Substance: MEGESTROL
  3. VITAMIN D2 [Concomitant]
     Active Substance: ERGOCALCIFEROL
  4. FAMOTIDINE. [Concomitant]
     Active Substance: FAMOTIDINE
  5. LEVOTHYROXINE [Concomitant]
     Active Substance: LEVOTHYROXINE
  6. ASPIRIN. [Concomitant]
     Active Substance: ASPIRIN
  7. TROSPIUM [Concomitant]
     Active Substance: TROSPIUM
  8. GLIMEPIRIDE. [Concomitant]
     Active Substance: GLIMEPIRIDE
  9. REVLIMID [Suspect]
     Active Substance: LENALIDOMIDE
     Indication: PLASMA CELL MYELOMA
     Dosage: 15MG DAILY X21D/28D ORALLY
     Route: 048
     Dates: start: 201407, end: 20140815
  10. FERROUS SULFATE [Concomitant]
     Active Substance: FERROUS SULFATE\FERROUS SULFATE, DRIED
  11. HYDROCORTISONE. [Concomitant]
     Active Substance: HYDROCORTISONE
  12. SULFASALAZINE. [Concomitant]
     Active Substance: SULFASALAZINE
  13. MELATONIN [Concomitant]
     Active Substance: MELATONIN
  14. DEXAMETHASONE. [Concomitant]
     Active Substance: DEXAMETHASONE
  15. RANITIDINE [Concomitant]
     Active Substance: RANITIDINE\RANITIDINE HYDROCHLORIDE
  16. METFORMIN [Concomitant]
     Active Substance: METFORMIN HYDROCHLORIDE
  17. REVLIMID [Suspect]
     Active Substance: LENALIDOMIDE
     Indication: PLASMA CELL MYELOMA
     Dosage: DAILY X21D/28D
     Route: 048
     Dates: start: 201112, end: 201207
  18. PREDNISONE. [Concomitant]
     Active Substance: PREDNISONE

REACTIONS (1)
  - Rash [None]

NARRATIVE: CASE EVENT DATE: 201407
